FAERS Safety Report 4499438-6 (Version None)
Quarter: 2004Q4

REPORT INFORMATION
  Report Type: 
  Country: None (occurrence: None)
  Receive Date: 20040928
  Receipt Date: 20040810
  Transmission Date: 20050328
  Serious: No
  Sender: FDA-Public Use
  Company Number: 04P-163-0269970-00

PATIENT
  Age: 82 Year
  Sex: Female
  Weight: 58.0604 kg

DRUGS (16)
  1. HUMIRA [Suspect]
     Indication: RHEUMATOID ARTHRITIS
     Dosage: 40 MG, 1 IN 2 WK, SUBCUTANEOUS
     Route: 058
     Dates: start: 20040101
  2. GLUCOSAMINE [Concomitant]
  3. ATENOLOL [Concomitant]
  4. VALSARTAN [Concomitant]
  5. LOVASTATIN [Concomitant]
  6. CLONIPINE [Concomitant]
  7. RALOXIFENE HCL [Concomitant]
  8. FUROSEMIDE [Concomitant]
  9. FOLIC ACID [Concomitant]
  10. METHOTREXATE SODIUM [Concomitant]
  11. MULTI-VITAMINS [Concomitant]
  12. PERITAN C [Concomitant]
  13. CORAL CALCIUM [Concomitant]
  14. SOFT GELS [Concomitant]
  15. PARACETAMOL [Concomitant]
  16. PANTOPRAZOLE [Concomitant]

REACTIONS (2)
  - INJECTION SITE PRURITUS [None]
  - INJECTION SITE RASH [None]
